FAERS Safety Report 5873949-0 (Version None)
Quarter: 2008Q3

REPORT INFORMATION
  Report Type: 
  Country: None (occurrence: None)
  Receive Date: 20080905
  Receipt Date: 20080905
  Transmission Date: 20090109
  Serious: Yes (Other)
  Sender: FDA-Public Use
  Company Number: None

PATIENT
  Age: 56 Year
  Sex: Male
  Weight: 74.8435 kg

DRUGS (1)
  1. TYLENOL [Suspect]
     Indication: INSOMNIA
     Dosage: 2 CAPSULES ONE TIME PO
     Route: 048
     Dates: start: 20080903, end: 20080903

REACTIONS (2)
  - HALLUCINATION [None]
  - HYPERVIGILANCE [None]
